FAERS Safety Report 6967336-1 (Version None)
Quarter: 2010Q3

REPORT INFORMATION
  Report Type: 
  Country: None (occurrence: None)
  Receive Date: 20100907
  Receipt Date: 20100831
  Transmission Date: 20110219
  Serious: Yes (Other)
  Sender: FDA-Public Use
  Company Number: US-B.I. PHARMACEUTICALS,INC./RIDGEFIELD-2010-BP-09283BP

PATIENT
  Sex: Female

DRUGS (8)
  1. SPIRIVA [Suspect]
     Indication: CHRONIC OBSTRUCTIVE PULMONARY DISEASE
     Dosage: 18 MCG
     Route: 055
     Dates: start: 20080101
  2. SPIRIVA [Suspect]
     Indication: ASTHMA
  3. ADVAIR DISKUS 100/50 [Concomitant]
     Indication: CHRONIC OBSTRUCTIVE PULMONARY DISEASE
  4. ADVAIR DISKUS 100/50 [Concomitant]
     Indication: ASTHMA
  5. THEOPHYLLINE [Concomitant]
     Indication: ASTHMA
  6. SYNTHROID [Concomitant]
     Indication: HYPOTHYROIDISM
  7. METOPROLOL TARTRATE [Concomitant]
     Indication: MYOCARDIAL INFARCTION
  8. ZETIA [Concomitant]
     Indication: BLOOD CHOLESTEROL INCREASED

REACTIONS (1)
  - LUNG NEOPLASM MALIGNANT [None]
